FAERS Safety Report 11733587 (Version 3)
Quarter: 2015Q4

REPORT INFORMATION
  Report Type: Report from Study
  Country: GB (occurrence: GB)
  Receive Date: 20151113
  Receipt Date: 20151201
  Transmission Date: 20160304
  Serious: Yes (Other)
  Sender: FDA-Public Use
  Company Number: GB-JNJFOC-20151105369

PATIENT
  Age: 51 Year
  Sex: Female

DRUGS (1)
  1. STELARA [Suspect]
     Active Substance: USTEKINUMAB
     Indication: PSORIASIS
     Dosage: TWO SYRINGES ON WEEK 0
     Route: 058
     Dates: start: 20151029

REACTIONS (2)
  - Rash generalised [Unknown]
  - Local swelling [Unknown]

NARRATIVE: CASE EVENT DATE: 201510
